FAERS Safety Report 6696757-X (Version None)
Quarter: 2010Q2

REPORT INFORMATION
  Report Type: 
  Country: None (occurrence: None)
  Receive Date: 20100426
  Receipt Date: 20100414
  Transmission Date: 20101027
  Serious: Yes (Hospitalization)
  Sender: FDA-Public Use
  Company Number: AU-ELI_LILLY_AND_COMPANY-AU201004003713

PATIENT
  Sex: Male
  Weight: 65.6 kg

DRUGS (6)
  1. PEMETREXED [Suspect]
     Indication: NON-SMALL CELL LUNG CANCER
     Dosage: 500 MG/M2, DAY ONE EVERY 21 DAYS
     Route: 042
     Dates: start: 20100301
  2. CISPLATIN [Suspect]
     Indication: NON-SMALL CELL LUNG CANCER
     Dosage: 75 MG/M2, OTHER
     Route: 042
     Dates: start: 20100301
  3. FOLIC ACID [Concomitant]
     Dates: start: 20100225
  4. VITAMIN B-12 [Concomitant]
     Dates: start: 20100224
  5. DEXAMETHASONE 1.5MG TAB [Concomitant]
     Dates: start: 20100228
  6. OXYCODONE HCL [Concomitant]
     Indication: PAIN
     Dates: start: 20100228

REACTIONS (1)
  - PULMONARY EMBOLISM [None]
